FAERS Safety Report 5048560-4 (Version None)
Quarter: 2006Q2

REPORT INFORMATION
  Report Type: 
  Country: None (occurrence: None)
  Receive Date: 20060601
  Receipt Date: 20060309
  Transmission Date: 20061013
  Serious: No
  Sender: FDA-Public Use
  Company Number: US200603002690

PATIENT
  Age: 69 Year
  Sex: Male
  Weight: 95.2 kg

DRUGS (5)
  1. CYMBALTA [Suspect]
     Indication: ANXIETY
     Dosage: 60 MG, DAILY (1/D)
     Dates: start: 20040901, end: 20060101
  2. DIOVAN [Concomitant]
  3. PRAVACHOL [Concomitant]
  4. SMZ-TMP DS (SULFAMETHOXAZOLE, TRIMETHOPRIM) [Concomitant]
  5. ZETIA [Concomitant]

REACTIONS (8)
  - ASTHENIA [None]
  - DIZZINESS [None]
  - FATIGUE [None]
  - FEELING HOT [None]
  - LACRIMATION INCREASED [None]
  - OCULAR HYPERAEMIA [None]
  - SOMNOLENCE [None]
  - VERTIGO [None]
